FAERS Safety Report 14227306 (Version 2)
Quarter: 2017Q4

REPORT INFORMATION
  Report Type: Spontaneous
  Country: FR (occurrence: FR)
  Receive Date: 20171127
  Receipt Date: 20171204
  Transmission Date: 20180321
  Serious: Yes (Hospitalization, Other)
  Sender: FDA-Public Use
  Company Number: FR-009507513-1711FRA008311

PATIENT
  Age: 55 Year
  Sex: Male
  Weight: 63 kg

DRUGS (12)
  1. NOVOMIX [Concomitant]
     Active Substance: INSULIN ASPART
     Indication: DIABETES MELLITUS
     Dosage: UNK
     Dates: start: 20150305
  2. NOVORAPID [Concomitant]
     Active Substance: INSULIN ASPART
     Indication: DIABETES MELLITUS
     Dosage: UNK, QD
     Dates: start: 2008, end: 20150305
  3. ALPRAZOLAM. [Concomitant]
     Active Substance: ALPRAZOLAM
     Dosage: UNK
  4. PROKINYL [Concomitant]
     Active Substance: METOCLOPRAMIDE HYDROCHLORIDE
     Dosage: 15 MG, BID
     Dates: start: 20141015
  5. REBETOL [Suspect]
     Active Substance: RIBAVIRIN
     Indication: HEPATITIS C
     Dosage: 1000 MG, QD
     Dates: start: 20140910, end: 20150224
  6. DAKLINZA [Suspect]
     Active Substance: DACLATASVIR
     Indication: HEPATITIS C
     Dosage: 60 MG, QD
     Dates: start: 20150511, end: 20151026
  7. DAKLINZA [Suspect]
     Active Substance: DACLATASVIR
     Indication: HEPATITIS B
  8. REBETOL [Suspect]
     Active Substance: RIBAVIRIN
     Indication: HEPATITIS B
     Dosage: 1000 MG, QD
     Dates: start: 20150511, end: 20151024
  9. SOVALDI [Suspect]
     Active Substance: SOFOSBUVIR
     Indication: HEPATITIS B
     Dosage: 400 MG, QD
     Dates: start: 20150511, end: 20151024
  10. SOVALDI [Suspect]
     Active Substance: SOFOSBUVIR
     Indication: HEPATITIS C
     Dosage: 400 MG, QD
     Dates: start: 20140910, end: 20150224
  11. LANTUS [Concomitant]
     Active Substance: INSULIN GLARGINE
     Indication: DIABETES MELLITUS
     Dosage: UNK, QD
     Dates: start: 2008, end: 20150305
  12. SERESTA [Concomitant]
     Active Substance: OXAZEPAM
     Dosage: 10 MG, QD

REACTIONS (6)
  - Hepatocellular carcinoma [Recovered/Resolved]
  - High frequency ablation [Recovering/Resolving]
  - Therapeutic embolisation [Recovering/Resolving]
  - Diabetic metabolic decompensation [Recovering/Resolving]
  - Liver transplant [Recovered/Resolved]
  - Therapeutic embolisation [Recovering/Resolving]

NARRATIVE: CASE EVENT DATE: 20150224
